FAERS Safety Report 10617666 (Version 1)
Quarter: 2014Q4

REPORT INFORMATION
  Report Type: Spontaneous
  Country: GB (occurrence: GB)
  Receive Date: 20141201
  Receipt Date: 20141201
  Transmission Date: 20150529
  Serious: Yes (Other)
  Sender: FDA-Public Use
  Company Number: GB-WATSON-2014-25709

PATIENT
  Age: 55 Year
  Sex: Female

DRUGS (1)
  1. ATRACURIUM (UNKNOWN) [Suspect]
     Active Substance: ATRACURIUM
     Indication: ENDOTRACHEAL INTUBATION
     Dosage: 50 MG, TOTAL
     Route: 042
     Dates: start: 20141111, end: 20141111

REACTIONS (1)
  - Airway complication of anaesthesia [Recovered/Resolved]

NARRATIVE: CASE EVENT DATE: 20141111
